FAERS Safety Report 6194048-7 (Version None)
Quarter: 2009Q2

REPORT INFORMATION
  Report Type: 
  Country: None (occurrence: None)
  Receive Date: 20090518
  Receipt Date: 20090518
  Transmission Date: 20091009
  Serious: Yes (Other)
  Sender: FDA-Public Use
  Company Number: US-PFIZER INC-2009179824

PATIENT
  Sex: Female
  Weight: 64.41 kg

DRUGS (1)
  1. CHANTIX [Suspect]
     Dates: start: 20090220, end: 20090221

REACTIONS (11)
  - BURNING SENSATION [None]
  - DYSGEUSIA [None]
  - DYSPEPSIA [None]
  - DYSPHAGIA [None]
  - DYSSTASIA [None]
  - EAR DISCOMFORT [None]
  - HYPOAESTHESIA [None]
  - LIP SWELLING [None]
  - MUSCULAR WEAKNESS [None]
  - URTICARIA [None]
  - VISION BLURRED [None]
